FAERS Safety Report 19567413 (Version 1)
Quarter: 2021Q3

REPORT INFORMATION
  Report Type: Spontaneous
  Country: US (occurrence: US)
  Receive Date: 20210715
  Receipt Date: 20210715
  Transmission Date: 20211014
  Serious: No
  Sender: FDA-Public Use
  Company Number: US-GLENMARK PHARMACEUTICALS-2020GMK050198

PATIENT

DRUGS (2)
  1. NORGESTIMATE AND ETHINYL ESTRADIOL TABLETS USP, 0.18 MG/0.035 MG, 0.21 [Suspect]
     Active Substance: ETHINYL ESTRADIOL\NORGESTIMATE
     Dosage: UNK (NEW PACK)
     Route: 065
  2. NORGESTIMATE AND ETHINYL ESTRADIOL TABLETS USP, 0.18 MG/0.035 MG, 0.21 [Suspect]
     Active Substance: ETHINYL ESTRADIOL\NORGESTIMATE
     Indication: CONTRACEPTION
     Dosage: UNK (OLD PACK)
     Route: 065

REACTIONS (3)
  - Product dose omission issue [Unknown]
  - Muscle spasms [Not Recovered/Not Resolved]
  - Intermenstrual bleeding [Not Recovered/Not Resolved]
